FAERS Safety Report 6034614-2 (Version None)
Quarter: 2009Q1

REPORT INFORMATION
  Report Type: 
  Country: None (occurrence: None)
  Receive Date: 20090112
  Receipt Date: 20090105
  Transmission Date: 20090719
  Serious: Yes (Hospitalization)
  Sender: FDA-Public Use
  Company Number: FR-ROCHE-606595

PATIENT
  Age: 70 Year
  Sex: Male

DRUGS (2)
  1. ROCEPHIN [Suspect]
     Indication: URINARY TRACT INFECTION
     Route: 030
     Dates: start: 20080719, end: 20080725
  2. TAVANIC [Suspect]
     Indication: URINARY TRACT INFECTION
     Route: 048
     Dates: start: 20080717, end: 20080719

REACTIONS (2)
  - PURPURA [None]
  - THROMBOCYTOPENIA [None]
